FAERS Safety Report 13269599 (Version 1)
Quarter: 2017Q1

REPORT INFORMATION
  Report Type: Spontaneous
  Country: SI (occurrence: SI)
  Receive Date: 20170224
  Receipt Date: 20170224
  Transmission Date: 20170428
  Serious: Yes (Other)
  Sender: FDA-Public Use
  Company Number: SI-BAYER-2017-024309

PATIENT
  Age: 53 Year
  Sex: Male

DRUGS (2)
  1. BETAFERON [Suspect]
     Active Substance: INTERFERON BETA-1B
     Indication: RELAPSING-REMITTING MULTIPLE SCLEROSIS
     Dosage: UNK
     Dates: start: 200901
  2. BETAFERON [Suspect]
     Active Substance: INTERFERON BETA-1B
     Indication: SECONDARY PROGRESSIVE MULTIPLE SCLEROSIS

REACTIONS (10)
  - Muscle spasticity [None]
  - Secondary progressive multiple sclerosis [None]
  - Ataxia [None]
  - Chills [None]
  - Paraparesis [None]
  - Gait disturbance [None]
  - Muscle spasticity [None]
  - Fatigue [None]
  - Ataxia [None]
  - Nervous system disorder [None]

NARRATIVE: CASE EVENT DATE: 200901
